FAERS Safety Report 16365710 (Version 1)
Quarter: 2019Q2

REPORT INFORMATION
  Report Type: Spontaneous
  Country: FR (occurrence: FR)
  Receive Date: 20190529
  Receipt Date: 20190529
  Transmission Date: 20190711
  Serious: Yes (Hospitalization)
  Sender: FDA-Public Use
  Company Number: FR-SUN PHARMACEUTICAL INDUSTRIES LTD-2019RR-208991

PATIENT
  Age: 35 Year
  Sex: Male
  Weight: 67 kg

DRUGS (5)
  1. HYDROXYZINE (CHLORHYDRATE D^) [Suspect]
     Active Substance: HYDROXYZINE HYDROCHLORIDE
     Indication: TOXICITY TO VARIOUS AGENTS
     Dosage: 1400 MILLIGRAM, UNK
     Route: 048
     Dates: start: 20190425, end: 20190425
  2. IZALGI [Suspect]
     Active Substance: ACETAMINOPHEN\OPIUM
     Indication: TOXICITY TO VARIOUS AGENTS
     Dosage: 53 DOSAGE FORM, UNK
     Route: 048
     Dates: start: 20190425, end: 20190425
  3. SKENAN [Suspect]
     Active Substance: MORPHINE SULFATE
     Indication: TOXICITY TO VARIOUS AGENTS
     Dosage: 1260 MILLIGRAM, UNK
     Route: 048
     Dates: start: 20190425, end: 20190425
  4. OXAZEPAM. [Suspect]
     Active Substance: OXAZEPAM
     Indication: PRODUCT USED FOR UNKNOWN INDICATION
     Dosage: 150 MILLIGRAM, UNK
     Route: 048
     Dates: start: 20190425, end: 20190425
  5. TRAMADOL. [Suspect]
     Active Substance: TRAMADOL
     Indication: TOXICITY TO VARIOUS AGENTS
     Dosage: 2100 MILLIGRAM, UNK
     Route: 048
     Dates: start: 20190425, end: 20190425

REACTIONS (5)
  - Rhabdomyolysis [Recovered/Resolved]
  - Bradypnoea [Recovered/Resolved]
  - Aspartate aminotransferase increased [Recovered/Resolved]
  - Coma [Recovered/Resolved]
  - Renal failure [Recovered/Resolved]

NARRATIVE: CASE EVENT DATE: 20190425
